FAERS Safety Report 8244615-1 (Version None)
Quarter: 2012Q1

REPORT INFORMATION
  Report Type: 
  Country: None (occurrence: None)
  Receive Date: 20120329
  Receipt Date: 20120323
  Transmission Date: 20120608
  Serious: Yes (Other)
  Sender: FDA-Public Use
  Company Number: JP-PFIZER INC-2012039900

PATIENT
  Age: 35 Year
  Sex: Female
  Weight: 60 kg

DRUGS (2)
  1. KAMIKIHITOU [Suspect]
  2. NASANYL [Suspect]
     Indication: ENDOMETRIOSIS
     Dosage: 200 UG, 2X/DAY
     Route: 045
     Dates: start: 20110817, end: 20120214

REACTIONS (1)
  - ANAPHYLACTOID REACTION [None]
